FAERS Safety Report 10706344 (Version 2)
Quarter: 2015Q1

REPORT INFORMATION
  Report Type: Spontaneous
  Country: FR (occurrence: None)
  Receive Date: 20150109
  Receipt Date: 20150224
  Transmission Date: 20150721
  Serious: Yes (Hospitalization)
  Sender: FDA-Public Use
  Company Number: 2014FE02868

PATIENT
  Age: 34 Year
  Sex: Female

DRUGS (5)
  1. UTROGESTAN [Concomitant]
     Active Substance: PROGESTERONE
  2. PENICILLIN (BENZYLPENICILLIN) (UNKNOWN) (BENZYLPENICILLIN) [Concomitant]
     Active Substance: PENICILLIN G
  3. MENOPUR [Suspect]
     Active Substance: FOLLICLE STIMULATING HORMONE BETA POLYPEPTIDE\LUTROPIN ALFA
     Indication: IN VITRO FERTILISATION
     Route: 058
     Dates: start: 20141117, end: 20141204
  4. FOLIC ACID ALMUS (FOLIC ACID) [Concomitant]
  5. DECAPEPTYL [Suspect]
     Active Substance: TRIPTORELIN ACETATE
     Indication: PRODUCT USED FOR UNKNOWN INDICATION
     Route: 058
     Dates: start: 20141117, end: 20141204

REACTIONS (5)
  - Cerebrovascular accident [None]
  - Language disorder [None]
  - Prescribed overdose [None]
  - Paraesthesia [None]
  - Ischaemic stroke [None]

NARRATIVE: CASE EVENT DATE: 20141207
